FAERS Safety Report 18005992 (Version 1)
Quarter: 2020Q3

REPORT INFORMATION
  Report Type: Spontaneous
  Country: AU (occurrence: AU)
  Receive Date: 20200710
  Receipt Date: 20200710
  Transmission Date: 20201103
  Serious: Yes (Death)
  Sender: FDA-Public Use
  Company Number: NVSC2020AU193377

PATIENT
  Age: 33 Year
  Sex: Male

DRUGS (3)
  1. RIBOCICLIB. [Suspect]
     Active Substance: RIBOCICLIB
     Indication: ACINAR CELL CARCINOMA OF PANCREAS
     Dosage: 400 MG, QD
     Route: 065
  2. SORAFENIB [Suspect]
     Active Substance: SORAFENIB
     Indication: ACINAR CELL CARCINOMA OF PANCREAS
     Dosage: UNK
     Route: 065
  3. TRAMETINIB [Suspect]
     Active Substance: TRAMETINIB
     Indication: ACINAR CELL CARCINOMA OF PANCREAS
     Dosage: 2 MG, QD
     Route: 048

REACTIONS (3)
  - Drug ineffective for unapproved indication [Unknown]
  - Malignant neoplasm progression [Fatal]
  - Acinar cell carcinoma of pancreas [Fatal]
